FAERS Safety Report 6610100-3 (Version None)
Quarter: 2010Q1

REPORT INFORMATION
  Report Type: 
  Country: None (occurrence: None)
  Receive Date: 20100219
  Receipt Date: 20100209
  Transmission Date: 20100710
  Serious: Yes (Other)
  Sender: FDA-Public Use
  Company Number: 006701

PATIENT
  Age: 2 Month
  Sex: Female

DRUGS (2)
  1. KEPPRA [Suspect]
     Indication: CONVULSION NEONATAL
     Dosage: (10 MG/KG  ORAL), (50 MG/KG ORAL)
  2. PHENOBARBITAL [Concomitant]

REACTIONS (2)
  - CONVULSION NEONATAL [None]
  - NO THERAPEUTIC RESPONSE [None]
